FAERS Safety Report 7894033-0 (Version None)
Quarter: 2011Q4

REPORT INFORMATION
  Report Type: 
  Country: None (occurrence: None)
  Receive Date: 20111104
  Receipt Date: 20111104
  Transmission Date: 20120403
  Serious: Yes (Death, Hospitalization)
  Sender: FDA-Public Use
  Company Number: DE-ABBOTT-11P-062-0842140-00

PATIENT
  Sex: Male

DRUGS (3)
  1. RAMIPRIL [Concomitant]
     Indication: PRODUCT USED FOR UNKNOWN INDICATION
  2. HUMIRA [Suspect]
     Indication: CROHN'S DISEASE
     Route: 058
     Dates: start: 20110303
  3. OPIATE [Suspect]
     Indication: PRODUCT USED FOR UNKNOWN INDICATION

REACTIONS (6)
  - NEPHROLITHIASIS [None]
  - CARDIAC FAILURE [None]
  - NERVOUS SYSTEM DISORDER [None]
  - OVERDOSE [None]
  - PAIN [None]
  - CENTRAL NERVOUS SYSTEM INFECTION [None]
